FAERS Safety Report 9552273 (Version 2)
Quarter: 2013Q3

REPORT INFORMATION
  Report Type: Report from Study
  Country: EG (occurrence: EG)
  Receive Date: 20130925
  Receipt Date: 20130926
  Transmission Date: 20140515
  Serious: Yes (Other)
  Sender: FDA-Public Use
  Company Number: EG-ROCHE-1279402

PATIENT
  Age: 47 Year
  Sex: Female

DRUGS (4)
  1. PEGASYS [Suspect]
     Indication: HEPATITIS VIRAL
     Route: 058
     Dates: start: 20130713
  2. RIBAVIRIN [Suspect]
     Indication: HEPATITIS VIRAL
     Route: 048
     Dates: start: 20130713
  3. AMANTADINE SULFATE [Suspect]
     Indication: HEPATITIS VIRAL
     Route: 048
     Dates: start: 2011
  4. INDERAL [Concomitant]
     Indication: CARDIAC FAILURE
     Route: 048

REACTIONS (2)
  - Dysphagia [Not Recovered/Not Resolved]
  - Weight decreased [Not Recovered/Not Resolved]
